FAERS Safety Report 11051298 (Version 3)
Quarter: 2015Q2

REPORT INFORMATION
  Report Type: Report from Study
  Country: US (occurrence: US)
  Receive Date: 20150421
  Receipt Date: 20150619
  Transmission Date: 20150821
  Serious: Yes (Life-Threatening, Hospitalization)
  Sender: FDA-Public Use
  Company Number: US-PFIZER INC-2015131375

PATIENT
  Age: 20 Year
  Sex: Male
  Weight: 90 kg

DRUGS (6)
  1. CYCLOPHOSPHAMIDE. [Suspect]
     Active Substance: CYCLOPHOSPHAMIDE
     Indication: OSTEOSARCOMA METASTATIC
     Dosage: UNK UNK, CYCLIC
     Dates: start: 20150316, end: 2015
  2. CYCLOPHOSPHAMIDE. [Suspect]
     Active Substance: CYCLOPHOSPHAMIDE
     Dosage: DAYS 1-5, TOTAL DOSE ADMINISTERED THIS COURSE 2650 MG
     Dates: start: 20150406, end: 20150410
  3. CRIZOTINIB [Suspect]
     Active Substance: CRIZOTINIB
     Indication: OSTEOSARCOMA METASTATIC
     Dosage: UNK UNK, CYCLIC
     Dates: start: 20150316, end: 2015
  4. CRIZOTINIB [Suspect]
     Active Substance: CRIZOTINIB
     Dosage: 215 MG/M2 TWICE DAILY, ON DAYS 1-21,  TOTAL DOSE ADMINISTERED THIS COURSE 5850 MG
     Dates: start: 20150406, end: 20150412
  5. TOPOTECAN [Suspect]
     Active Substance: TOPOTECAN\TOPOTECAN HYDROCHLORIDE
     Indication: OSTEOSARCOMA METASTATIC
     Dosage: UNK UNK, CYCLIC
     Dates: start: 20150316, end: 2015
  6. TOPOTECAN [Suspect]
     Active Substance: TOPOTECAN\TOPOTECAN HYDROCHLORIDE
     Dosage: DAYS 1-5, TOTAL DOSE ADMINISTERED THIS COURSE 8 MG
     Dates: start: 20150406, end: 20150410

REACTIONS (2)
  - Skin infection [Not Recovered/Not Resolved]
  - Hypotension [Not Recovered/Not Resolved]

NARRATIVE: CASE EVENT DATE: 20150412
